FAERS Safety Report 7307995-7 (Version None)
Quarter: 2011Q1

REPORT INFORMATION
  Report Type: 
  Country: None (occurrence: None)
  Receive Date: 20110223
  Receipt Date: 20100325
  Transmission Date: 20110831
  Serious: No
  Sender: FDA-Public Use
  Company Number: US-ROCHE-694906

PATIENT
  Sex: Female

DRUGS (4)
  1. CYTOVENE [Suspect]
     Route: 065
  2. VALCYTE [Suspect]
     Route: 065
  3. CYTOVENE [Suspect]
     Route: 065
  4. VALCYTE [Suspect]
     Route: 065

REACTIONS (1)
  - DRUG HYPERSENSITIVITY [None]
